FAERS Safety Report 4645995-6 (Version None)
Quarter: 2005Q2

REPORT INFORMATION
  Report Type: 
  Country: None (occurrence: None)
  Receive Date: 20050427
  Receipt Date: 20050420
  Transmission Date: 20051028
  Serious: Yes (Other)
  Sender: FDA-Public Use
  Company Number: 200511060EU

PATIENT
  Age: 4 Year
  Sex: Female
  Weight: 21 kg

DRUGS (1)
  1. METRONIDAZOLE [Suspect]
     Route: 048

REACTIONS (2)
  - OVERDOSE [None]
  - VOMITING [None]
